FAERS Safety Report 8050697-2 (Version None)
Quarter: 2012Q1

REPORT INFORMATION
  Report Type: 
  Country: None (occurrence: None)
  Receive Date: 20120117
  Receipt Date: 20120117
  Transmission Date: 20120608
  Serious: Yes (Other)
  Sender: FDA-Public Use
  Company Number: None

PATIENT
  Age: 46 Year
  Sex: Female
  Weight: 53.523 kg

DRUGS (1)
  1. TOPIRAMATE [Suspect]
     Indication: MIGRAINE
     Dosage: 25 MG
     Dates: start: 20080101, end: 20120114

REACTIONS (3)
  - HEADACHE [None]
  - DEJA VU [None]
  - PRODUCT SUBSTITUTION ISSUE [None]
